FAERS Safety Report 4781182-9 (Version None)
Quarter: 2005Q3

REPORT INFORMATION
  Report Type: 
  Country: None (occurrence: None)
  Receive Date: 20050928
  Receipt Date: 20050831
  Transmission Date: 20060218
  Serious: Yes (Hospitalization)
  Sender: FDA-Public Use
  Company Number: FR-BRISTOL-MYERS SQUIBB COMPANY-13097969

PATIENT
  Age: 24 Year
  Sex: Male
  Weight: 58 kg

DRUGS (6)
  1. ABILIFY [Suspect]
     Indication: DELUSIONAL DISORDER, PERSECUTORY TYPE
     Route: 048
     Dates: start: 20050429, end: 20050812
  2. ABILIFY [Suspect]
     Indication: SCHIZOPHRENIA
     Route: 048
     Dates: start: 20050429, end: 20050812
  3. ZOLOFT [Suspect]
     Route: 048
     Dates: start: 20010427
  4. TERCIAN [Concomitant]
     Dates: start: 20010427
  5. ARTANE [Concomitant]
     Dates: start: 20010427
  6. LYSANXIA [Concomitant]
     Dates: start: 20010427

REACTIONS (6)
  - ANXIETY [None]
  - ASTHENIA [None]
  - EXOPHTHALMOS [None]
  - MOOD SWINGS [None]
  - NERVOUSNESS [None]
  - WEIGHT DECREASED [None]
